FAERS Safety Report 5313252-0 (Version None)
Quarter: 2007Q2

REPORT INFORMATION
  Report Type: 
  Country: None (occurrence: None)
  Receive Date: 20070501
  Receipt Date: 20070420
  Transmission Date: 20071010
  Serious: Yes (Other)
  Sender: FDA-Public Use
  Company Number: US-JNJFOC-20070405519

PATIENT
  Age: 6 Decade
  Sex: Female

DRUGS (2)
  1. LEVAQUIN [Suspect]
     Indication: DRUG USE FOR UNKNOWN INDICATION
     Route: 048
  2. MULTIPLE DRUGS [Concomitant]
     Route: 065

REACTIONS (1)
  - PERIARTHRITIS [None]
